FAERS Safety Report 8934814 (Version 1)
Quarter: 2012Q4

REPORT INFORMATION
  Report Type: 
  Country: IN (occurrence: IN)
  Receive Date: 20121129
  Receipt Date: 20121129
  Transmission Date: 20130627
  Serious: Yes (Death, Hospitalization)
  Sender: FDA-Public Use
  Company Number: IN-BAXTER-2012BAX024886

PATIENT
  Sex: Female

DRUGS (1)
  1. CALCIUM CHLORIDE\DEXTROSE MONOHYDRATE\MAGNESIUM CHLORIDE\SODIUM CHLORIDE\SODIUM LACTATE [Suspect]
     Indication: PERITONEAL DIALYSIS
     Route: 033
     Dates: end: 20121116

REACTIONS (3)
  - Peritonitis bacterial [Fatal]
  - Cardiac disorder [Fatal]
  - Multi-organ disorder [Fatal]
